FAERS Safety Report 8464088-3 (Version None)
Quarter: 2012Q2

REPORT INFORMATION
  Report Type: 
  Country: None (occurrence: None)
  Receive Date: 20120625
  Receipt Date: 20120612
  Transmission Date: 20120825
  Serious: Yes (Congenital Anomaly, Other)
  Sender: FDA-Public Use
  Company Number: DE-MYLANLABS-2012S1011843

PATIENT
  Age: 0 Year
  Sex: Female
  Weight: 3 kg

DRUGS (3)
  1. LAMOTRIGINE [Suspect]
     Dosage: 650 [MG/D ]/ 300MG-0-350MG
     Route: 064
     Dates: start: 20110409, end: 20120113
  2. LEVOTHYROXINE [Concomitant]
     Route: 064
     Dates: start: 20110409, end: 20120113
  3. FOLIC ACID [Concomitant]
     Indication: PROPHYLAXIS OF NEURAL TUBE DEFECT
     Route: 064
     Dates: start: 20110409, end: 20120113

REACTIONS (6)
  - POOR WEIGHT GAIN NEONATAL [None]
  - MATERNAL EXPOSURE DURING PREGNANCY [None]
  - CONGENITAL HIP DEFORMITY [None]
  - SOMNOLENCE [None]
  - CONGENITAL TONGUE ANOMALY [None]
  - EXPOSURE DURING BREAST FEEDING [None]
